FAERS Safety Report 9768320 (Version 3)
Quarter: 2014Q4

REPORT INFORMATION
  Report Type: Spontaneous
  Country: IT (occurrence: IT)
  Receive Date: 20131217
  Receipt Date: 20141021
  Transmission Date: 20150529
  Serious: Yes (Death, Hospitalization)
  Sender: FDA-Public Use
  Company Number: PHHY2013IT145159

PATIENT
  Age: 63 Year
  Sex: Male

DRUGS (4)
  1. REPAGLINIDE. [Suspect]
     Active Substance: REPAGLINIDE
     Indication: PRODUCT USED FOR UNKNOWN INDICATION
     Dosage: 1 MG, QD
     Route: 065
  2. NOREPINEPHRINE [Suspect]
     Active Substance: NOREPINEPHRINE\NOREPINEPHRINE BITARTRATE
     Indication: HYPOTENSION
     Route: 065
  3. METFORMIN [Suspect]
     Active Substance: METFORMIN HYDROCHLORIDE
     Indication: TYPE 2 DIABETES MELLITUS
     Dosage: 850 MG, TID
     Route: 065
  4. ANAGRELIDE [Concomitant]
     Active Substance: ANAGRELIDE
     Indication: PRODUCT USED FOR UNKNOWN INDICATION
     Dosage: 0.5 MG, BID

REACTIONS (13)
  - Drug level increased [Unknown]
  - Metabolic acidosis [Unknown]
  - Hypotension [Fatal]
  - Tachycardia [Unknown]
  - Dyspnoea [Unknown]
  - Hypoglycaemia [Unknown]
  - Diarrhoea [Unknown]
  - Blood gases abnormal [Unknown]
  - Drug ineffective [Unknown]
  - Haemodynamic instability [Fatal]
  - Hyperlactacidaemia [Unknown]
  - Blood creatinine increased [Unknown]
  - Toxicity to various agents [Unknown]
